FAERS Safety Report 4418535-4 (Version None)
Quarter: 2004Q3

REPORT INFORMATION
  Report Type: 
  Country: None (occurrence: None)
  Receive Date: 20040809
  Receipt Date: 20040525
  Transmission Date: 20050211
  Serious: No
  Sender: FDA-Public Use
  Company Number: US-GLAXOSMITHKLINE-A0512066A

PATIENT
  Age: 55 Year
  Sex: Female

DRUGS (4)
  1. PAXIL CR [Suspect]
     Indication: DEPRESSION
     Dosage: 12.5MG PER DAY
     Route: 048
     Dates: start: 20040519
  2. TRAZODONE HCL [Concomitant]
  3. PERCOCET [Concomitant]
  4. METHADONE HCL [Concomitant]

REACTIONS (6)
  - ANXIETY [None]
  - DRUG WITHDRAWAL SYNDROME [None]
  - FEELING HOT AND COLD [None]
  - HEARING IMPAIRED [None]
  - NIGHTMARE [None]
  - VISUAL DISTURBANCE [None]
